FAERS Safety Report 21380764 (Version 2)
Quarter: 2022Q3

REPORT INFORMATION
  Report Type: Spontaneous
  Country: CN (occurrence: CN)
  Receive Date: 20220927
  Receipt Date: 20220927
  Transmission Date: 20221027
  Serious: Yes (Other)
  Sender: FDA-Public Use
  Company Number: CN-PFIZER INC-PV202200064376

PATIENT
  Age: 57 Year
  Sex: Male

DRUGS (6)
  1. IRINOTECAN HYDROCHLORIDE [Suspect]
     Active Substance: IRINOTECAN HYDROCHLORIDE
     Indication: Adenocarcinoma pancreas
     Dosage: (DAY 1) EVERY 2 WEEKS
     Dates: start: 20190328
  2. TORIPALIMAB [Suspect]
     Active Substance: TORIPALIMAB
     Indication: Adenocarcinoma pancreas
     Dosage: (DAY 1) EVERY 3 WEEKS
     Dates: start: 20190328
  3. TORIPALIMAB [Suspect]
     Active Substance: TORIPALIMAB
     Dosage: MONOTONOUS
     Dates: start: 20190912
  4. OXALIPLATIN [Suspect]
     Active Substance: OXALIPLATIN
     Indication: Adenocarcinoma pancreas
     Dosage: (ON DAY 1) EVERY 2 WEEKS
     Dates: start: 20190328
  5. LEUCOVORIN [Suspect]
     Active Substance: LEUCOVORIN
     Indication: Adenocarcinoma pancreas
     Dosage: (DAY 1) EVERY 2 WEEKS
     Dates: start: 20190328
  6. FLUOROURACIL SODIUM [Suspect]
     Active Substance: FLUOROURACIL SODIUM
     Indication: Adenocarcinoma pancreas
     Dosage: (DELIVERED BY CONTINUOUS INFUSION FOR 46 HOURS) EVERY 2 WEEKS
     Dates: start: 20190328

REACTIONS (4)
  - Myelosuppression [Recovered/Resolved]
  - Neurotoxicity [Recovered/Resolved]
  - Immune-mediated hypothyroidism [Unknown]
  - Transaminases increased [Recovered/Resolved]
